FAERS Safety Report 8153782-X (Version None)
Quarter: 2012Q1

REPORT INFORMATION
  Report Type: 
  Country: None (occurrence: None)
  Receive Date: 20120221
  Receipt Date: 20120216
  Transmission Date: 20120608
  Serious: Yes (Death)
  Sender: FDA-Public Use
  Company Number: JP-GLAXOSMITHKLINE-B0764965A

PATIENT
  Sex: Male
  Weight: 60 kg

DRUGS (4)
  1. DIGOXIN [Concomitant]
     Dosage: .25MG PER DAY
     Route: 048
  2. PROMACTA [Suspect]
     Indication: IDIOPATHIC THROMBOCYTOPENIC PURPURA
     Dosage: 12.5MG PER DAY
     Route: 048
     Dates: start: 20110820
  3. BASEN [Concomitant]
     Dosage: .9MG PER DAY
     Route: 048
  4. GLIMICRON [Concomitant]
     Dosage: 20MG PER DAY
     Route: 048

REACTIONS (1)
  - SEPSIS [None]
